FAERS Safety Report 5209361-7 (Version None)
Quarter: 2006Q4

REPORT INFORMATION
  Report Type: 
  Country: None (occurrence: None)
  Receive Date: 20061101
  Receipt Date: 20060822
  Transmission Date: 20070319
  Serious: No
  Sender: FDA-Public Use
  Company Number: SPV1-2006-00501

PATIENT
  Age: 67 Year
  Sex: Male
  Weight: 51.5 kg

DRUGS (21)
  1. FOSRENOL [Suspect]
     Indication: HYPERPHOSPHATAEMIA
     Dosage: SEE IMAGE
     Dates: end: 20060801
  2. FOSRENOL [Suspect]
     Indication: HYPERPHOSPHATAEMIA
     Dosage: SEE IMAGE
     Dates: start: 20060701
  3. FOSRENOL [Suspect]
     Indication: HYPERPHOSPHATAEMIA
     Dosage: SEE IMAGE
     Dates: start: 20060801
  4. CINACALCET (CINACALCET) [Concomitant]
  5. CALCITROL (ERGOCALCIFEROL, RETINOL) [Concomitant]
  6. LISINOPRIL [Concomitant]
  7. LOPRESSOR [Concomitant]
  8. CATAPRES [Concomitant]
  9. ADALAT [Concomitant]
  10. NITRODERM [Concomitant]
  11. ZOCOR [Concomitant]
  12. ASPIRIN [Concomitant]
  13. COLACE (DOCUSATE SODIUM) [Concomitant]
  14. OMEPRAZOLE [Concomitant]
  15. EPOGEN [Concomitant]
  16. IRON SUCROSE (SACCHARATED IRON OXIDE) [Concomitant]
  17. PLAVIX [Concomitant]
  18. ISONIAZID [Concomitant]
  19. PYRIDOXINE (PYRIDOXINE) [Concomitant]
  20. COMBIVENT SM (SALBUTAMOL SULFATE, IPRATROPIUM BROMIDE) [Concomitant]
  21. NEPHROCAPS (FOLIC ACID, VITAMINS NOS) [Concomitant]

REACTIONS (1)
  - BLOOD PHOSPHORUS INCREASED [None]
